FAERS Safety Report 9723190 (Version 1)
Quarter: 2013Q4

REPORT INFORMATION
  Report Type: Spontaneous
  Country: GB (occurrence: None)
  Receive Date: 20131126
  Receipt Date: 20131126
  Transmission Date: 20140711
  Serious: Yes (Life-Threatening, Hospitalization)
  Sender: FDA-Public Use
  Company Number: FK201305035

PATIENT
  Age: 65 Year
  Sex: Male

DRUGS (14)
  1. FUROSEMIDE (MANUFACTURER UNKNOWN) (FUROSEMIDE) (FUROSEMIDE) [Suspect]
     Indication: CARDIAC FAILURE CONGESTIVE
     Route: 048
  2. OMEPRAZOLE (OMEPRAZOLE) [Suspect]
     Route: 048
  3. SPIRONOLACTONE (SPIRONOLACTONE) [Suspect]
     Indication: CARDIAC FAILURE CONGESTIVE
     Route: 048
  4. WARFARIN (WARFARIN) [Suspect]
     Indication: ATRIAL FIBRILLATION
     Dosage: 1 IN 2 D, ORAL
  5. WARFARIN (WARFARIN) [Suspect]
     Indication: CARDIAC FAILURE CONGESTIVE
     Dosage: 1 IN 2 D, ORAL
  6. VITAMIN B COMPLEX STRONG (B-KOMPLEX) [Concomitant]
  7. SYMBICORT [Concomitant]
  8. BISOPROLOL (BISOPROLOL) [Concomitant]
  9. DIGOXIN (DIGOXIN) [Concomitant]
  10. FOLIC ACID (FOLIC ACID) [Concomitant]
  11. PARACETAMOL (PARACETAMOL) [Concomitant]
  12. SALBUTAMOL (SALBUTAMOL) [Concomitant]
  13. THIAMINE (THIAMINE) [Concomitant]
  14. TIOTROPIUM (TIOTROPIUM) [Concomitant]

REACTIONS (2)
  - International normalised ratio increased [None]
  - Hyponatraemia [None]
